FAERS Safety Report 17266202 (Version 1)
Quarter: 2020Q1

REPORT INFORMATION
  Report Type: Spontaneous
  Country: US (occurrence: US)
  Receive Date: 20200114
  Receipt Date: 20200114
  Transmission Date: 20200409
  Serious: No
  Sender: FDA-Public Use
  Company Number: US-TEVA-2020-US-1166193

PATIENT
  Age: 81 Year
  Sex: Female

DRUGS (4)
  1. IRON [Suspect]
     Active Substance: IRON
     Route: 065
  2. ATENOLOL. [Suspect]
     Active Substance: ATENOLOL
     Route: 065
  3. METHOCARBAMOL. [Suspect]
     Active Substance: METHOCARBAMOL
     Route: 065
  4. LIOPARON (LEUPRORELIN ACETATE) [Suspect]
     Active Substance: LEUPROLIDE ACETATE
     Route: 065

REACTIONS (3)
  - Scratch [Unknown]
  - Dermatitis herpetiformis [Unknown]
  - Skin haemorrhage [Unknown]
